FAERS Safety Report 6360933-6 (Version None)
Quarter: 2009Q3

REPORT INFORMATION
  Report Type: 
  Country: None (occurrence: None)
  Receive Date: 20090918
  Receipt Date: 20090907
  Transmission Date: 20100115
  Serious: Yes (Death, Hospitalization, Other)
  Sender: FDA-Public Use
  Company Number: PHEH2007US10936

PATIENT
  Sex: Male

DRUGS (15)
  1. EXJADE [Suspect]
     Indication: MYELODYSPLASTIC SYNDROME
     Dosage: 2000 MG, QD
     Route: 048
     Dates: start: 20060901
  2. FOSAMAX [Concomitant]
  3. ASPIRIN [Concomitant]
  4. PREDNISONE [Concomitant]
     Dosage: 50 MG, QD
  5. NABUMETONE [Concomitant]
     Dosage: 750 MG, QD
  6. MORPHINE SULFATE INJ [Concomitant]
     Dosage: 15 MG, UNK
  7. PAXIL [Concomitant]
     Dosage: 40 MG, QD
  8. CALCIUM [Concomitant]
  9. VITAMIN D [Concomitant]
  10. ZANTAC [Concomitant]
     Dosage: 150 MG, QD
  11. ASCORBIC ACID [Concomitant]
  12. MULTI-VITAMINS [Concomitant]
  13. ANTIBIOTICS [Concomitant]
  14. FOLIC ACID [Concomitant]
  15. NEURONTIN [Concomitant]
     Dosage: 300 MG, QD

REACTIONS (50)
  - ACTIVATED PARTIAL THROMBOPLASTIN TIME PROLONGED [None]
  - ALBUMIN GLOBULIN RATIO DECREASED [None]
  - ANAEMIA [None]
  - ASPARTATE AMINOTRANSFERASE INCREASED [None]
  - BACTERIAL DISEASE CARRIER [None]
  - BLOOD ALKALINE PHOSPHATASE INCREASED [None]
  - BLOOD BILIRUBIN INCREASED [None]
  - BLOOD CALCIUM DECREASED [None]
  - BLOOD GLUCOSE INCREASED [None]
  - BLOOD LACTIC ACID DECREASED [None]
  - BLOOD PRESSURE DECREASED [None]
  - BLOOD SODIUM DECREASED [None]
  - BLOOD UREA INCREASED [None]
  - BLOOD UREA NITROGEN/CREATININE RATIO INCREASED [None]
  - CANDIDIASIS [None]
  - CARDIAC MURMUR [None]
  - CHILLS [None]
  - CONJUNCTIVAL PALLOR [None]
  - DISCOMFORT [None]
  - DYSPNOEA [None]
  - ECCHYMOSIS [None]
  - ERYTHEMA [None]
  - FEELING ABNORMAL [None]
  - GLOBULINS INCREASED [None]
  - HAEMATOCRIT DECREASED [None]
  - HAEMOGLOBIN DECREASED [None]
  - HEADACHE [None]
  - HYPERHIDROSIS [None]
  - HYPOPHAGIA [None]
  - INTERNATIONAL NORMALISED RATIO INCREASED [None]
  - JAUNDICE [None]
  - MALAISE [None]
  - MEAN CELL HAEMOGLOBIN [None]
  - MEAN PLATELET VOLUME DECREASED [None]
  - NAUSEA [None]
  - OEDEMA [None]
  - PAIN [None]
  - PNEUMONIA [None]
  - PROTHROMBIN TIME PROLONGED [None]
  - PYREXIA [None]
  - RED BLOOD CELL COUNT DECREASED [None]
  - RENAL FAILURE [None]
  - RETCHING [None]
  - RHONCHI [None]
  - SEPSIS [None]
  - STAPHYLOCOCCAL BACTERAEMIA [None]
  - TACHYCARDIA [None]
  - THROMBOCYTOPENIA [None]
  - VOMITING [None]
  - WOUND DRAINAGE [None]
